FAERS Safety Report 24601554 (Version 2)
Quarter: 2025Q3

REPORT INFORMATION
  Report Type: Spontaneous
  Country: US (occurrence: US)
  Receive Date: 20241111
  Receipt Date: 20250816
  Transmission Date: 20251021
  Serious: No
  Sender: ALEXION PHARMACEUTICALS
  Company Number: 202411USA002509US

PATIENT
  Sex: Female

DRUGS (5)
  1. BREZTRI [Suspect]
     Active Substance: BUDESONIDE\FORMOTEROL\GLYCOPYRROLATE
     Indication: Product used for unknown indication
  2. CARVEDILOL [Suspect]
     Active Substance: CARVEDILOL
     Indication: Product used for unknown indication
  3. OFEV [Suspect]
     Active Substance: NINTEDANIB
     Indication: Idiopathic pulmonary fibrosis
     Dosage: 200 MILLIGRAM, Q12H
  4. OFEV [Suspect]
     Active Substance: NINTEDANIB
     Dosage: 300 MILLIGRAM, Q12H
  5. OFEV [Suspect]
     Active Substance: NINTEDANIB

REACTIONS (14)
  - Headache [Not Recovered/Not Resolved]
  - Nausea [Recovering/Resolving]
  - Illness [Recovering/Resolving]
  - Vomiting [Recovering/Resolving]
  - Nasopharyngitis [Recovering/Resolving]
  - Decreased appetite [Unknown]
  - Dyspnoea [Unknown]
  - Vomiting [Recovered/Resolved]
  - Off label use [Unknown]
  - Nausea [Recovered/Resolved]
  - Diarrhoea [Recovered/Resolved]
  - Infection [Recovering/Resolving]
  - Drug intolerance [Unknown]
  - Hypersomnia [Unknown]
